FAERS Safety Report 12294018 (Version 3)
Quarter: 2016Q3

REPORT INFORMATION
  Report Type: Spontaneous
  Country: BE (occurrence: BE)
  Receive Date: 20160422
  Receipt Date: 20160915
  Transmission Date: 20161109
  Serious: Yes (Hospitalization)
  Sender: FDA-Public Use
  Company Number: BE-ACTELION-A-CH2016-134603

PATIENT
  Age: 31 Year
  Sex: Female
  Weight: 62 kg

DRUGS (11)
  1. TRACLEER [Suspect]
     Active Substance: BOSENTAN
     Indication: PULMONARY ARTERIAL HYPERTENSION
     Dosage: 62.5 MG, BID
     Route: 048
     Dates: start: 201103, end: 201103
  2. LOSFERRON [Concomitant]
     Dosage: UNK, QD
     Route: 048
  3. REVATIO [Concomitant]
     Active Substance: SILDENAFIL CITRATE
  4. VELETRI [Suspect]
     Active Substance: EPOPROSTENOL
     Dosage: 2 NG/KG, PER MIN
     Route: 042
     Dates: start: 20150622
  5. VELETRI [Suspect]
     Active Substance: EPOPROSTENOL
     Dosage: 15 NG/KG, PER MIN
     Route: 042
  6. VELETRI [Suspect]
     Active Substance: EPOPROSTENOL
     Indication: PULMONARY ARTERIAL HYPERTENSION
     Dosage: 6 NG/KG, PER MIN
     Route: 042
  7. VELETRI [Suspect]
     Active Substance: EPOPROSTENOL
     Dosage: 6.5 NG/KG, PER MIN
     Route: 042
  8. TRACLEER [Suspect]
     Active Substance: BOSENTAN
     Dosage: 125 MG, BID
     Route: 048
     Dates: start: 201104
  9. NEXIAM [Concomitant]
     Active Substance: ESOMEPRAZOLE
     Dosage: 20 UNK, BID
     Route: 048
  10. LANOXIN [Concomitant]
     Active Substance: DIGOXIN
     Dosage: 0.125 MG, QD
     Route: 048
  11. SINTROM [Concomitant]
     Active Substance: ACENOCOUMAROL
     Dosage: 3.0 MG, QD
     Route: 048

REACTIONS (10)
  - Decreased appetite [Recovering/Resolving]
  - Sensation of foreign body [Recovering/Resolving]
  - Depressed mood [Recovered/Resolved]
  - Flushing [Recovering/Resolving]
  - Chest discomfort [Recovering/Resolving]
  - Palpitations [Recovering/Resolving]
  - Pallor [Recovered/Resolved]
  - Malaise [Recovered/Resolved]
  - Abdominal distension [Recovering/Resolving]
  - Product reconstitution issue [Not Recovered/Not Resolved]

NARRATIVE: CASE EVENT DATE: 20151101
